FAERS Safety Report 10041298 (Version 1)
Quarter: 2014Q1

REPORT INFORMATION
  Report Type: Spontaneous
  Country: US (occurrence: US)
  Receive Date: 20140327
  Receipt Date: 20140327
  Transmission Date: 20141002
  Serious: No
  Sender: FDA-Public Use
  Company Number: US-009507513-1403USA002896

PATIENT
  Sex: Male

DRUGS (3)
  1. CORICIDIN HBP COUGH AND COLD [Suspect]
     Indication: RHINORRHOEA
     Dosage: UNK, UNKNOWN
     Route: 048
  2. CORICIDIN HBP COUGH AND COLD [Suspect]
     Indication: PYREXIA
  3. CORICIDIN HBP COUGH AND COLD [Suspect]
     Indication: PAIN

REACTIONS (1)
  - Drug effect decreased [Unknown]
